FAERS Safety Report 8769607 (Version 1)
Quarter: 2012Q4

REPORT INFORMATION
  Report Type: Report from Study
  Country: CA (occurrence: CA)
  Receive Date: 20120905
  Receipt Date: 20120905
  Transmission Date: 20130627
  Serious: Yes (Hospitalization)
  Sender: FDA-Public Use
  Company Number: CA-JNJFOC-20120813101

PATIENT
  Age: 42 Year
  Sex: Female
  Weight: 138 kg

DRUGS (2)
  1. REMICADE [Suspect]
     Indication: CROHN^S DISEASE
     Route: 042
     Dates: start: 20110426
  2. CIPRALEX [Concomitant]
     Route: 048
     Dates: start: 2011

REACTIONS (1)
  - Depression [Recovered/Resolved]
